FAERS Safety Report 5767613-6 (Version None)
Quarter: 2008Q2

REPORT INFORMATION
  Report Type: 
  Country: None (occurrence: None)
  Receive Date: 20080612
  Receipt Date: 20080602
  Transmission Date: 20081010
  Serious: Yes (Disabling)
  Sender: FDA-Public Use
  Company Number: GB-ABBOTT-08P-167-0454902-00

PATIENT
  Age: 42 Year
  Sex: Female

DRUGS (5)
  1. DEPAKOTE [Suspect]
     Indication: DEPRESSION
     Route: 048
     Dates: start: 20080421, end: 20080424
  2. DISULFIRAM [Concomitant]
     Indication: ALCOHOL ABUSE
     Route: 048
  3. CHLORPROMAZINE [Concomitant]
     Indication: ANXIETY
     Route: 048
  4. FLUOXETINE HYDROCHLORIDE [Concomitant]
     Indication: DEPRESSION
     Route: 048
  5. NICOTINE [Concomitant]
     Indication: DRUG USE FOR UNKNOWN INDICATION
     Route: 045

REACTIONS (2)
  - HALLUCINATION, AUDITORY [None]
  - PARANOIA [None]
